FAERS Safety Report 8770249 (Version 3)
Quarter: 2012Q4

REPORT INFORMATION
  Report Type: Report from Study
  Country: IE (occurrence: KR)
  Receive Date: 20120904
  Receipt Date: 20120912
  Transmission Date: 20130627
  Serious: Yes (Hospitalization)
  Sender: FDA-Public Use
  Company Number: KR-BRISTOL-MYERS SQUIBB COMPANY-16859449

PATIENT
  Age: 52 Year
  Sex: Male

DRUGS (10)
  1. IPILIMUMAB [Suspect]
     Indication: NON-SMALL CELL LUNG CANCER
     Dosage: on 28Aug12:520mg
No of course:4
     Route: 042
     Dates: start: 20120802, end: 20120828
  2. CARBOPLATIN [Suspect]
     Indication: NON-SMALL CELL LUNG CANCER
     Dosage: AUC 6
On 28Aug12:574mg
     Route: 042
     Dates: start: 20120802, end: 20120828
  3. PACLITAXEL [Suspect]
     Indication: NON-SMALL CELL LUNG CANCER
     Dosage: on 28aug12:277mg
     Route: 042
     Dates: start: 20120802, end: 20120828
  4. PLACEBO [Suspect]
     Indication: NON-SMALL CELL LUNG CANCER
     Route: 042
     Dates: start: 20120802, end: 20120828
  5. ACETYLCYSTEINE [Concomitant]
     Dates: start: 20120601
  6. BACLOFEN [Concomitant]
     Dates: start: 20120705
  7. CEFPODOXIME PROXETIL [Concomitant]
     Dates: start: 20120608
  8. MEGESTROL ACETATE [Concomitant]
     Dates: start: 20120615
  9. METOCLOPRAMIDE HCL [Concomitant]
     Dates: end: 20120810
  10. ULTRACET [Concomitant]

REACTIONS (1)
  - Pneumonia [Recovered/Resolved]
